FAERS Safety Report 11523282 (Version 1)
Quarter: 2015Q3

REPORT INFORMATION
  Report Type: Spontaneous
  Country: US (occurrence: US)
  Receive Date: 20150903
  Receipt Date: 20150903
  Transmission Date: 20151125
  Serious: No
  Sender: FDA-Public Use
  Company Number: US-ELI_LILLY_AND_COMPANY-US201003008237

PATIENT
  Age: 58 Year
  Sex: Male

DRUGS (1)
  1. HUMALOG MIX75/25 [Suspect]
     Active Substance: INSULIN LISPRO
     Dosage: 8 U, 2/D
     Dates: start: 2003

REACTIONS (4)
  - Blood glucose increased [Unknown]
  - Pollakiuria [Unknown]
  - Thirst [Unknown]
  - Drug ineffective [Unknown]

NARRATIVE: CASE EVENT DATE: 201002
